FAERS Safety Report 17451386 (Version 1)
Quarter: 2020Q1

REPORT INFORMATION
  Report Type: Spontaneous
  Country: US (occurrence: US)
  Receive Date: 20200224
  Receipt Date: 20200224
  Transmission Date: 20200409
  Serious: No
  Sender: FDA-Public Use
  Company Number: US-PFIZER INC-2020036304

PATIENT
  Age: 35 Year
  Sex: Male

DRUGS (7)
  1. DILANTIN [Suspect]
     Active Substance: PHENYTOIN
     Indication: EPILEPSY
     Dosage: 700 MG, DAILY(TAKE 300 MG PO (PER ORAL) QAM (EVERY MORNING) AND 400 MG PO QPM (EVERY EVENING))
     Route: 048
     Dates: start: 20180725
  2. DILANTIN [Concomitant]
     Active Substance: PHENYTOIN
     Dosage: 300 MG, 2X/DAY
     Dates: start: 20170112, end: 20200121
  3. DILANTIN [Suspect]
     Active Substance: PHENYTOIN
     Dosage: 700 MG, DAILY
     Route: 048
     Dates: start: 20190807
  4. LEVETIRACETAM. [Concomitant]
     Active Substance: LEVETIRACETAM
     Dosage: 500 MG, 2X/DAY
     Route: 048
     Dates: start: 20190729
  5. CALCIO [CALCIUM CARBONATE] [Concomitant]
     Dosage: 500 MG, DAILY
     Dates: start: 20150105
  6. LEVETIRACETAM. [Concomitant]
     Active Substance: LEVETIRACETAM
     Dosage: 500 MG, 2X/DAY
     Route: 048
     Dates: start: 20190722
  7. PANTOPRAZOLE [Concomitant]
     Active Substance: PANTOPRAZOLE
     Dosage: 1 DF, DAILY
     Route: 048
     Dates: start: 20200121

REACTIONS (5)
  - Off label use [Unknown]
  - Weight increased [Unknown]
  - Product use in unapproved indication [Unknown]
  - Chest pain [Unknown]
  - Prescribed overdose [Unknown]
